FAERS Safety Report 6837903-4 (Version None)
Quarter: 2010Q3

REPORT INFORMATION
  Report Type: 
  Country: None (occurrence: None)
  Receive Date: 20100713
  Receipt Date: 20070525
  Transmission Date: 20110219
  Serious: No
  Sender: FDA-Public Use
  Company Number: US-PFIZER INC-2007042861

PATIENT
  Sex: Female
  Weight: 56.818 kg

DRUGS (5)
  1. CHANTIX [Suspect]
     Indication: SMOKING CESSATION THERAPY
     Dosage: 0.5MG QD EVERY DAY TDD:0.5MG
     Dates: start: 20070518
  2. COPAXONE [Concomitant]
  3. LEVOXYL [Concomitant]
  4. SOLU-MEDROL [Concomitant]
     Route: 042
  5. TOPAMAX [Concomitant]

REACTIONS (2)
  - NAUSEA [None]
  - VOMITING [None]
